FAERS Safety Report 5890494-7 (Version None)
Quarter: 2008Q3

REPORT INFORMATION
  Report Type: 
  Country: None (occurrence: None)
  Receive Date: 20080918
  Receipt Date: 20080903
  Transmission Date: 20090109
  Serious: Yes (Death, Hospitalization)
  Sender: FDA-Public Use
  Company Number: 2008AL010405

PATIENT
  Age: 35 Year
  Sex: Female

DRUGS (3)
  1. FEVERALL [Suspect]
  2. KIVEXA [Concomitant]
  3. TRIZIVIR [Concomitant]

REACTIONS (30)
  - ANAEMIA [None]
  - BLOOD ALKALINE PHOSPHATASE INCREASED [None]
  - BLOOD PRESSURE DIASTOLIC INCREASED [None]
  - CARDIAC DISORDER [None]
  - CARDIAC FAILURE [None]
  - CARDIAC TAMPONADE [None]
  - CARDIO-RESPIRATORY ARREST [None]
  - CARDIOGENIC SHOCK [None]
  - CARDIOMEGALY [None]
  - CREPITATIONS [None]
  - DRUG HYPERSENSITIVITY [None]
  - DRUG LEVEL DECREASED [None]
  - GAMMA-GLUTAMYLTRANSFERASE INCREASED [None]
  - GASTRITIS [None]
  - HAEMOPHILUS INFECTION [None]
  - HEPATIC CONGESTION [None]
  - HEPATIC NECROSIS [None]
  - HEPATIC STEATOSIS [None]
  - HYPOVOLAEMIA [None]
  - INCORRECT DOSE ADMINISTERED [None]
  - MYOCARDIAL INFARCTION [None]
  - PERFORATED ULCER [None]
  - PERICARDIAL EFFUSION [None]
  - PUBIC PAIN [None]
  - PULMONARY EMBOLISM [None]
  - PULMONARY OEDEMA [None]
  - RENAL IMPAIRMENT [None]
  - RESPIRATORY ALKALOSIS [None]
  - SPUTUM CULTURE POSITIVE [None]
  - SWELLING FACE [None]
